FAERS Safety Report 8949557 (Version 1)
Quarter: 2012Q4

REPORT INFORMATION
  Report Type: 
  Country: US (occurrence: US)
  Receive Date: 20121206
  Receipt Date: 20121206
  Transmission Date: 20130627
  Serious: Yes (Other)
  Sender: FDA-Public Use
  Company Number: US-MILLENNIUM PHARMACEUTICALS, INC.-2012-08558

PATIENT
  Age: 62 Year
  Sex: Male

DRUGS (1)
  1. VELCADE [Suspect]
     Indication: MULTIPLE MYELOMA
     Dosage: UNK
     Route: 058

REACTIONS (3)
  - Induration [Not Recovered/Not Resolved]
  - Oedema peripheral [Not Recovered/Not Resolved]
  - Erythema [Not Recovered/Not Resolved]
